FAERS Safety Report 10156969 (Version 2)
Quarter: 2014Q2

REPORT INFORMATION
  Report Type: Spontaneous
  Country: US (occurrence: US)
  Receive Date: 20140507
  Receipt Date: 20140605
  Transmission Date: 20141212
  Serious: No
  Sender: FDA-Public Use
  Company Number: US-TEVA-479863USA

PATIENT
  Age: 25 Year
  Sex: Female
  Weight: 75.36 kg

DRUGS (2)
  1. PARAGARD 380A [Suspect]
     Indication: CONTRACEPTION
     Route: 015
     Dates: start: 20140417, end: 201405
  2. PRENATAL VITAMINS [Concomitant]
     Indication: POSTPARTUM STATE

REACTIONS (2)
  - Device expulsion [Recovered/Resolved]
  - Metrorrhagia [Unknown]
